FAERS Safety Report 7032399-4 (Version None)
Quarter: 2010Q4

REPORT INFORMATION
  Report Type: 
  Country: None (occurrence: None)
  Receive Date: 20101005
  Receipt Date: 20090302
  Transmission Date: 20110411
  Serious: Yes (Hospitalization)
  Sender: FDA-Public Use
  Company Number: 2009PV000006

PATIENT
  Age: 56 Year
  Sex: Male
  Weight: 81 kg

DRUGS (8)
  1. DEPOCYT [Suspect]
     Indication: METASTASES TO MENINGES
     Dosage: 50 MG;X2;INTH
     Route: 037
     Dates: start: 20071021, end: 20071114
  2. RITUXIMAB (RITUXIMAB) [Suspect]
     Indication: NON-HODGKIN'S LYMPHOMA
     Dosage: 740 MG;QD;IV
     Route: 042
     Dates: start: 20071019
  3. METHOTREXATE [Suspect]
     Dosage: 5900 MG;QD;IV
     Route: 042
     Dates: start: 20071020
  4. VINCRISTINE (VINCRISTINE) [Suspect]
     Dosage: 2 MG;QD;IV
     Route: 042
     Dates: start: 20071020
  5. DOXORUBICIN (DOXORUBICIN) [Suspect]
     Dosage: 118 MG;QD;IV
     Route: 042
     Dates: start: 20071021
  6. CYCLOPHOSPHAMIDE [Suspect]
     Dosage: 2940 NG;QD;IV
     Route: 042
     Dates: start: 20071021
  7. METHYLPREDNISOLONE SODIUM SUCCINATE [Suspect]
     Dosage: 400 MG;QD;IV
     Route: 042
     Dates: start: 20071023
  8. METHYLPREDNISOLONE [Suspect]
     Dosage: 192 MG;QD;IV
     Route: 042
     Dates: start: 20071025

REACTIONS (1)
  - DEVICE RELATED SEPSIS [None]
